FAERS Safety Report 5427911-2 (Version None)
Quarter: 2007Q3

REPORT INFORMATION
  Report Type: 
  Country: None (occurrence: None)
  Receive Date: 20070828
  Receipt Date: 20070820
  Transmission Date: 20080115
  Serious: Yes (Hospitalization, Other)
  Sender: FDA-Public Use
  Company Number: US-PFIZER INC-2007069521

PATIENT

DRUGS (2)
  1. CAMPTOSAR [Suspect]
     Indication: COLON CANCER METASTATIC
  2. CETUXIMAB [Concomitant]

REACTIONS (2)
  - BLOOD CREATININE INCREASED [None]
  - DIALYSIS [None]
